FAERS Safety Report 11054857 (Version 2)
Quarter: 2015Q3

REPORT INFORMATION
  Report Type: Spontaneous
  Country: US (occurrence: US)
  Receive Date: 20150422
  Receipt Date: 20150806
  Transmission Date: 20151125
  Serious: No
  Sender: FDA-Public Use
  Company Number: US-LEO PHARMA-233865

PATIENT
  Age: 63 Year
  Sex: Female

DRUGS (1)
  1. PICATO [Suspect]
     Active Substance: INGENOL MEBUTATE
     Indication: ACTINIC KERATOSIS
     Route: 061
     Dates: start: 20150412, end: 20150414

REACTIONS (9)
  - Application site discharge [Not Recovered/Not Resolved]
  - Drug administered at inappropriate site [Unknown]
  - Application site swelling [Recovered/Resolved]
  - Eye swelling [Recovered/Resolved]
  - Incorrect product storage [Unknown]
  - Application site erythema [Not Recovered/Not Resolved]
  - Application site exfoliation [Recovered/Resolved]
  - Application site vesicles [Recovered/Resolved]
  - Erythema [Not Recovered/Not Resolved]

NARRATIVE: CASE EVENT DATE: 20150412
